FAERS Safety Report 8522340 (Version 5)
Quarter: 2012Q4

REPORT INFORMATION
  Report Type: Report from Study
  Country: PR (occurrence: PR)
  Receive Date: 20120419
  Receipt Date: 20121010
  Transmission Date: 20130627
  Serious: Yes (Other)
  Sender: FDA-Public Use
  Company Number: PR-ABBOTT-12P-131-0925948-00

PATIENT
  Age: 82 None
  Sex: Female
  Weight: 57.66 kg

DRUGS (5)
  1. HUMIRA [Suspect]
     Indication: RHEUMATOID ARTHRITIS
     Route: 058
     Dates: start: 201112, end: 201202
  2. HUMIRA [Suspect]
     Dates: start: 201202, end: 201207
  3. PEPTOBISMOL [Concomitant]
     Indication: GASTRITIS
     Dosage: 1 Tablespoon as needed
     Route: 048
  4. TRAMADOL [Concomitant]
     Indication: PAIN
     Route: 048
  5. PANADOL [Concomitant]
     Indication: PAIN
     Route: 048

REACTIONS (9)
  - Peripheral vascular disorder [Recovered/Resolved]
  - Vomiting [Recovered/Resolved]
  - Diarrhoea [Recovered/Resolved]
  - Food intolerance [Recovered/Resolved]
  - Skin ulcer [Recovered/Resolved]
  - Oedema peripheral [Recovering/Resolving]
  - Pruritus [Recovering/Resolving]
  - Pain in extremity [Recovering/Resolving]
  - Nasopharyngitis [Recovering/Resolving]
